FAERS Safety Report 7174275-2 (Version None)
Quarter: 2010Q4

REPORT INFORMATION
  Report Type: 
  Country: None (occurrence: None)
  Receive Date: 20101219
  Receipt Date: 20100323
  Transmission Date: 20110411
  Serious: No
  Sender: FDA-Public Use
  Company Number: US-AMGEN-KDL401310

PATIENT

DRUGS (7)
  1. ENBREL [Suspect]
     Indication: PSORIASIS
     Dosage: 50 MG, QWK
     Route: 058
  2. ENBREL [Suspect]
     Indication: RHEUMATOID ARTHRITIS
  3. LEVOTHYROXINE SODIUM [Concomitant]
     Dosage: 112 A?G, UNK
  4. LISINOPRIL [Concomitant]
     Dosage: 2.5 MG, UNK
  5. TRIMETHOPRIM [Concomitant]
     Dosage: 100 MG, UNK
  6. ASPIRIN [Concomitant]
     Dosage: 81 MG, UNK
  7. CALCIUM WITH VITAMIN D [Concomitant]
     Dosage: UNK UNK, UNK

REACTIONS (1)
  - GROIN PAIN [None]
